FAERS Safety Report 21927598 (Version 1)
Quarter: 2023Q1

REPORT INFORMATION
  Report Type: Spontaneous
  Country: US (occurrence: None)
  Receive Date: 20230130
  Receipt Date: 20230130
  Transmission Date: 20230418
  Serious: Yes (Disabling)
  Sender: FDA-Public Use
  Company Number: None

PATIENT
  Age: 63 Year
  Sex: Female
  Weight: 121.5 kg

DRUGS (13)
  1. TIROSINT [Suspect]
     Active Substance: LEVOTHYROXINE SODIUM
     Indication: Thyroidectomy
     Dosage: OTHER STRENGTH : MCG;?OTHER QUANTITY : 1 CAPSULE(S);?OTHER FREQUENCY : EVERY OTHER DAY;?
     Route: 048
  2. TIROSINT-SOL [Suspect]
     Active Substance: LEVOTHYROXINE SODIUM
     Indication: Thyroidectomy
     Dosage: OTHER STRENGTH : MICROGRAM/ML;?OTHER QUANTITY : 1 AMPULES;?OTHER FREQUENCY : EVERY OTHER DAY;?
     Route: 048
  3. METFORMIN [Concomitant]
     Active Substance: METFORMIN HYDROCHLORIDE
  4. OXYBUTYNIN [Concomitant]
     Active Substance: OXYBUTYNIN
  5. CITALOPRAM [Concomitant]
     Active Substance: CITALOPRAM HYDROBROMIDE
  6. JARDIANCE [Concomitant]
     Active Substance: EMPAGLIFLOZIN
  7. CALCITRIOL [Concomitant]
     Active Substance: CALCITRIOL
  8. CALCIUM CARBONATE [Concomitant]
     Active Substance: CALCIUM CARBONATE
  9. VITAMIN D3 [Concomitant]
     Active Substance: CHOLECALCIFEROL
  10. VITAMIN B12 [Concomitant]
     Active Substance: CYANOCOBALAMIN
  11. BIOTIN [Concomitant]
     Active Substance: BIOTIN
  12. Mg Bisglycinate [Concomitant]
  13. CO Q10 w/ Red Rice Yeast [Concomitant]

REACTIONS (5)
  - Heart rate irregular [None]
  - Chest pain [None]
  - Palpitations [None]
  - Hot flush [None]
  - Dyspnoea [None]

NARRATIVE: CASE EVENT DATE: 20221001
